FAERS Safety Report 9967368 (Version 2)
Quarter: 2014Q1

REPORT INFORMATION
  Report Type: Report from Study
  Country: US (occurrence: US)
  Receive Date: 20140305
  Receipt Date: 20140305
  Transmission Date: 20141002
  Serious: Yes (Other)
  Sender: FDA-Public Use
  Company Number: US-ABBVIE-13P-163-1137093-00

PATIENT
  Age: 30 Year
  Sex: Female
  Weight: 77.63 kg

DRUGS (3)
  1. HUMIRA [Suspect]
     Indication: CROHN^S DISEASE
     Route: 058
     Dates: end: 201306
  2. HUMIRA [Suspect]
     Route: 058
     Dates: start: 20130805
  3. EQL OMEPRAZOLE DR [Concomitant]
     Indication: PRODUCT USED FOR UNKNOWN INDICATION

REACTIONS (2)
  - Appendicitis [Recovered/Resolved]
  - Abdominal pain [Recovering/Resolving]
